FAERS Safety Report 8406017-4 (Version None)
Quarter: 2012Q2

REPORT INFORMATION
  Report Type: 
  Country: None (occurrence: None)
  Receive Date: 20120604
  Receipt Date: 20120524
  Transmission Date: 20120825
  Serious: Yes (Disabling, Other)
  Sender: FDA-Public Use
  Company Number: US-JNJFOC-20120519408

PATIENT
  Sex: Female
  Weight: 69.85 kg

DRUGS (2)
  1. TOPAMAX [Suspect]
     Indication: CONVULSION
     Route: 048
  2. ASPIRIN [Concomitant]
     Indication: ANTICOAGULANT THERAPY
     Route: 048

REACTIONS (6)
  - ROAD TRAFFIC ACCIDENT [None]
  - CENTRAL PAIN SYNDROME [None]
  - TOOTH INFECTION [None]
  - TOOTH INJURY [None]
  - CEREBROVASCULAR ACCIDENT [None]
  - DISABILITY [None]
